FAERS Safety Report 22293849 (Version 1)
Quarter: 2023Q2

REPORT INFORMATION
  Report Type: Report from Study
  Country: IT (occurrence: IT)
  Receive Date: 20230508
  Receipt Date: 20230508
  Transmission Date: 20230722
  Serious: Yes (Other)
  Sender: FDA-Public Use
  Company Number: None

PATIENT
  Age: 59 Year
  Sex: Female
  Weight: 68 kg

DRUGS (6)
  1. IRINOTECAN [Suspect]
     Active Substance: IRINOTECAN
     Indication: Pancreatic carcinoma
     Dosage: 230 MILLIGRAM, Q2W,230 MG EVERY 14 DAYS
     Route: 042
     Dates: start: 20221221
  2. OXALIPLATIN [Suspect]
     Active Substance: OXALIPLATIN
     Indication: Pancreatic carcinoma
     Dosage: 140 MILLIGRAM, Q2W, 140 MG EVERY 14 DAYS,
     Route: 042
  3. FLUOROURACIL [Suspect]
     Active Substance: FLUOROURACIL
     Indication: Pancreatic carcinoma
     Dosage: 4380 MILLIGRAM, Q2W, 4380 MG EVERY 14 DAYS
     Route: 042
     Dates: start: 20221221
  4. KCL [Concomitant]
     Active Substance: POTASSIUM CHLORIDE
     Dosage: 4DF,600MG; 4 CP/DAY (2 CP AFTER LUNCH
     Route: 048
  5. CREON [Concomitant]
     Active Substance: PANCRELIPASE AMYLASE\PANCRELIPASE LIPASE\PANCRELIPASE PROTEASE
     Dosage: 5DF, QD1000 IU; 5CP/DAY 1 CP AT BF, 2 CP LUNCH,DIN
     Route: 048
  6. PANTOPRAZOLE [Concomitant]
     Active Substance: PANTOPRAZOLE
     Dosage: 40 MILLIGRAM, QD,40 MG; 1 DOSE UNIT/DAY
     Route: 048

REACTIONS (4)
  - Neurotoxicity [Unknown]
  - Dysgeusia [Unknown]
  - Asthenia [Unknown]
  - Alopecia [Unknown]

NARRATIVE: CASE EVENT DATE: 20230301
